FAERS Safety Report 14026621 (Version 1)
Quarter: 2017Q3

REPORT INFORMATION
  Report Type: Other
  Country: GB (occurrence: GB)
  Receive Date: 20170929
  Receipt Date: 20170929
  Transmission Date: 20171128
  Serious: Yes (Other)
  Sender: FDA-Public Use
  Company Number: GB-CLARIS PHARMASERVICES-2028149

PATIENT
  Age: 60 Year
  Sex: Female
  Weight: 84.55 kg

DRUGS (4)
  1. AZELAIC ACID. [Concomitant]
     Active Substance: AZELAIC ACID
     Dates: start: 20170901
  2. HYDROCORTISONE. [Concomitant]
     Active Substance: HYDROCORTISONE
     Dates: start: 20170901
  3. LEVOTHYROXINE SODIUM. [Concomitant]
     Active Substance: LEVOTHYROXINE SODIUM
     Dates: start: 20131001
  4. METRONIDAZOLE. [Suspect]
     Active Substance: METRONIDAZOLE
     Indication: ROSACEA
     Route: 003

REACTIONS (2)
  - Intracranial pressure increased [Recovered/Resolved]
  - Papilloedema [Recovered/Resolved]
